FAERS Safety Report 8031189-3 (Version None)
Quarter: 2012Q1

REPORT INFORMATION
  Report Type: 
  Country: None (occurrence: None)
  Receive Date: 20120105
  Receipt Date: 20111222
  Transmission Date: 20120608
  Serious: Yes (Other)
  Sender: FDA-Public Use
  Company Number: MPS1-1000618

PATIENT
  Age: 4 Year
  Sex: Female
  Weight: 15 kg

DRUGS (6)
  1. ALDURAZYME [Suspect]
     Indication: MUCOPOLYSACCHARIDOSIS I
     Dosage: 1500 IE, QW, INTRAVENOUS
     Route: 042
     Dates: start: 20101001
  2. VIGANTOLETTEN (COLECALCIFEROL) [Concomitant]
  3. ENALAPRIL MALEATE AND HYDROCHLOROTHIAZIDE [Concomitant]
  4. ANTIHISTAMINES [Concomitant]
  5. CORTICOSTEROIDS [Concomitant]
  6. CARVEDILOL [Concomitant]

REACTIONS (3)
  - DERMATITIS ALLERGIC [None]
  - INFUSION RELATED REACTION [None]
  - DYSPNOEA [None]
